FAERS Safety Report 7933634-8 (Version None)
Quarter: 2011Q4

REPORT INFORMATION
  Report Type: 
  Country: None (occurrence: None)
  Receive Date: 20111122
  Receipt Date: 20111109
  Transmission Date: 20120403
  Serious: Yes (Hospitalization)
  Sender: FDA-Public Use
  Company Number: PHHY2011FR098865

PATIENT
  Sex: Male

DRUGS (2)
  1. TENORDATE [Concomitant]
     Route: 048
  2. TEGRETOL [Suspect]
     Indication: HEADACHE
     Route: 048
     Dates: start: 20110701, end: 20110801

REACTIONS (16)
  - ACUTE GENERALISED EXANTHEMATOUS PUSTULOSIS [None]
  - LYMPHADENOPATHY [None]
  - HAEMOGLOBIN DECREASED [None]
  - FOLLICULITIS [None]
  - ICHTHYOSIS [None]
  - DRUG RASH WITH EOSINOPHILIA AND SYSTEMIC SYMPTOMS [None]
  - PYREXIA [None]
  - RASH PAPULAR [None]
  - EOSINOPHILIA [None]
  - LEUKOCYTOSIS [None]
  - HEADACHE [None]
  - CYSTITIS [None]
  - FACE OEDEMA [None]
  - DIABETES MELLITUS [None]
  - PRURITUS GENERALISED [None]
  - TOXIC SKIN ERUPTION [None]
